FAERS Safety Report 4474875-4 (Version None)
Quarter: 2004Q4

REPORT INFORMATION
  Report Type: 
  Country: None (occurrence: None)
  Receive Date: 20041012
  Receipt Date: 20041004
  Transmission Date: 20050328
  Serious: Yes (Hospitalization)
  Sender: FDA-Public Use
  Company Number: NO-2004-033098

PATIENT
  Age: 41 Year
  Sex: Female

DRUGS (2)
  1. LEVONORGESTREL [Suspect]
     Indication: CONTRACEPTION
     Dosage: 20 UG/DAY, CONT, INTRA-UTERINE
     Route: 015
     Dates: start: 20021001, end: 20040801
  2. MAXAL (RIZATRIPTAN BENZOATE) TABLET [Suspect]
     Indication: MIGRAINE
     Dosage: ORAL
     Route: 048
     Dates: end: 20040801

REACTIONS (2)
  - CEREBRAL INFARCTION [None]
  - VISUAL DISTURBANCE [None]
